FAERS Safety Report 7660186-2 (Version None)
Quarter: 2011Q3

REPORT INFORMATION
  Report Type: 
  Country: None (occurrence: None)
  Receive Date: 20110805
  Receipt Date: 20110728
  Transmission Date: 20111222
  Serious: Yes (Other)
  Sender: FDA-Public Use
  Company Number: PHHY2011US68183

PATIENT
  Sex: Female

DRUGS (11)
  1. SYNTHROID [Concomitant]
     Indication: HYPOTHYROIDISM
     Dosage: UNK UKN, UNK
     Route: 048
  2. BACLOFEN [Concomitant]
     Dosage: UNK UKN, UNK
  3. ZANAFLEX [Concomitant]
     Dosage: UNK UKN, UNK
  4. FOLIC ACID [Concomitant]
     Dosage: UNK UKN, UNK
  5. FLEXERIL [Concomitant]
     Dosage: UNK UKN, UNK
  6. CALCIUM W/VITAMIN D NOS [Concomitant]
     Dosage: UNK UKN, UNK
  7. GILENYA [Suspect]
     Indication: RELAPSING-REMITTING MULTIPLE SCLEROSIS
     Dosage: 0.5 MG, QD
     Route: 048
     Dates: start: 20110125
  8. CYMBALTA [Concomitant]
     Dosage: UNK UKN, UNK
  9. VITAMIN B-12 [Concomitant]
     Dosage: UNK UKN, UNK
  10. PROVIGIL [Concomitant]
     Dosage: UNK UKN, UNK
  11. FAMPRIDINE [Concomitant]
     Dosage: UNK UKN, UNK

REACTIONS (1)
  - SQUAMOUS CELL CARCINOMA [None]
